FAERS Safety Report 13883862 (Version 1)
Quarter: 2017Q3

REPORT INFORMATION
  Report Type: Spontaneous
  Country: US (occurrence: US)
  Receive Date: 20170815
  Receipt Date: 20170815
  Transmission Date: 20171127
  Serious: Yes (Other)
  Sender: FDA-Public Use
  Company Number: None

PATIENT
  Age: 55 Year
  Sex: Female
  Weight: 60.75 kg

DRUGS (2)
  1. CYMBALTA [Suspect]
     Active Substance: DULOXETINE HYDROCHLORIDE
     Indication: BACK PAIN
     Dosage: ?          QUANTITY:1 CAPSULE(S);?
     Route: 048
     Dates: start: 20170502, end: 20170716
  2. NEURONTIN [Concomitant]
     Active Substance: GABAPENTIN

REACTIONS (2)
  - Vomiting [None]
  - Hyperglycaemia [None]

NARRATIVE: CASE EVENT DATE: 20170710
